FAERS Safety Report 20510612 (Version 1)
Quarter: 2022Q1

REPORT INFORMATION
  Report Type: Report from Study
  Country: US (occurrence: None)
  Receive Date: 20220224
  Receipt Date: 20220224
  Transmission Date: 20220423
  Serious: Yes (Death)
  Sender: FDA-Public Use
  Company Number: US-ROCHE-3032233

PATIENT
  Age: 85 Year
  Sex: Male
  Weight: 56.3 kg

DRUGS (1)
  1. ATEZOLIZUMAB [Suspect]
     Active Substance: ATEZOLIZUMAB
     Indication: Chondrosarcoma
     Route: 041
     Dates: start: 20211201

REACTIONS (2)
  - Respiratory failure [Fatal]
  - Death [Fatal]

NARRATIVE: CASE EVENT DATE: 20211213
